FAERS Safety Report 6985647-0 (Version None)
Quarter: 2010Q3

REPORT INFORMATION
  Report Type: 
  Country: None (occurrence: None)
  Receive Date: 20100915
  Receipt Date: 20100914
  Transmission Date: 20110219
  Serious: Yes (Hospitalization)
  Sender: FDA-Public Use
  Company Number: GXKR2010DE10369

PATIENT
  Age: 71 Year
  Sex: Male
  Weight: 85 kg

DRUGS (10)
  1. OPIPRAMOL (NGX) [Suspect]
     Indication: RESTLESSNESS
     Dosage: 50 MG, BID
     Route: 048
     Dates: start: 20070101, end: 20080906
  2. ENALAPRIL MALEATE [Suspect]
     Indication: HYPERTENSION
     Dosage: 20 MG, QD
     Route: 048
     Dates: start: 20060101
  3. TARGIN [Interacting]
     Indication: BACK PAIN
     Dosage: 1 DF, BID
     Route: 048
     Dates: start: 20070101
  4. PENTOXIFYLLIN AL [Concomitant]
  5. PLETAL [Concomitant]
  6. MELPERONE [Concomitant]
  7. CLOPIDOGREL [Concomitant]
  8. LERCANIDIPINE [Suspect]
     Indication: HYPERTENSION
     Dosage: 10 MG, QD
     Route: 048
     Dates: start: 20060101
  9. LEVEMIR [Suspect]
     Indication: DIABETES MELLITUS
     Dosage: 14 IU, QD
     Route: 058
     Dates: start: 20080101
  10. NOVORAPID [Suspect]
     Indication: DIABETES MELLITUS
     Dosage: 20/10/12 IU/DAILY
     Route: 058
     Dates: start: 20080101, end: 20080908

REACTIONS (2)
  - DIZZINESS [None]
  - HYPOGLYCAEMIA [None]
